FAERS Safety Report 10638092 (Version 3)
Quarter: 2015Q1

REPORT INFORMATION
  Report Type: Spontaneous
  Country: US (occurrence: US)
  Receive Date: 20141208
  Receipt Date: 20150313
  Transmission Date: 20150720
  Serious: Yes (Death)
  Sender: FDA-Public Use
  Company Number: US-PFIZER INC-2014333852

PATIENT
  Age: 62 Year
  Sex: Female

DRUGS (22)
  1. CAMPTOSAR [Suspect]
     Active Substance: IRINOTECAN HYDROCHLORIDE
     Dosage: 600 MG, Q 3 WEEKS
     Route: 042
     Dates: start: 20140825, end: 20140825
  2. CAMPTOSAR [Suspect]
     Active Substance: IRINOTECAN HYDROCHLORIDE
     Dosage: 600 MG, Q 3 WEEKS
     Route: 042
     Dates: start: 20140915, end: 20140915
  3. FLUOROURACIL. [Concomitant]
     Active Substance: FLUOROURACIL
     Indication: COLON CANCER STAGE IV
     Dosage: 950 MG (500 MG/M2), CYCLIC
     Dates: start: 20140728, end: 20140728
  4. FLUOROURACIL. [Concomitant]
     Active Substance: FLUOROURACIL
     Dosage: 950 MG (500 MG/M2), CYCLIC
     Dates: start: 20140915, end: 20140915
  5. DECADRON [Concomitant]
     Active Substance: DEXAMETHASONE
     Dosage: 20 MG, UNK
     Dates: start: 20140825, end: 20140825
  6. FLUOROURACIL. [Concomitant]
     Active Substance: FLUOROURACIL
     Dosage: 710 MG (500 MG/M2), CYCLIC
     Dates: start: 20140804, end: 20140804
  7. FLUOROURACIL. [Concomitant]
     Active Substance: FLUOROURACIL
     Dosage: 710 MG (500 MG/M2), CYCLIC
     Dates: start: 20140825, end: 20140825
  8. LEUCOVORIN [Concomitant]
     Active Substance: LEUCOVORIN
     Dosage: 30 MG/M2 (40), CYCLIC
     Dates: start: 20140825, end: 20140825
  9. ATROPINE [Concomitant]
     Active Substance: ATROPINE
     Dosage: 0.25 MG, AS NEEDED
     Dates: start: 20140915, end: 20140915
  10. LEUCOVORIN [Concomitant]
     Active Substance: LEUCOVORIN
     Indication: COLON CANCER STAGE IV
     Dosage: 30 MG/M2 (40), CYCLIC
     Dates: start: 20140728, end: 20140728
  11. LEUCOVORIN [Concomitant]
     Active Substance: LEUCOVORIN
     Dosage: 30 MG/M2 (40), CYCLIC
     Dates: start: 20140915, end: 20140915
  12. ATROPINE [Concomitant]
     Active Substance: ATROPINE
     Indication: ANTIEMETIC SUPPORTIVE CARE
     Dosage: 0.25 MG, AS NEEDED
     Dates: start: 20140804, end: 20140804
  13. LEUCOVORIN [Concomitant]
     Active Substance: LEUCOVORIN
     Dosage: 30 MG/M2 (40), CYCLIC
     Dates: start: 20140804, end: 20140804
  14. ZOFRAN [Concomitant]
     Active Substance: ONDANSETRON HYDROCHLORIDE
     Dosage: 16 MG, UNK
     Dates: start: 20140804, end: 20140804
  15. DECADRON [Concomitant]
     Active Substance: DEXAMETHASONE
     Dosage: 20 MG, UNK
     Dates: start: 20140915, end: 20140915
  16. ATROPINE [Concomitant]
     Active Substance: ATROPINE
     Dosage: 0.25 MG, AS NEEDED
     Dates: start: 20140825, end: 20140825
  17. ZOFRAN [Concomitant]
     Active Substance: ONDANSETRON HYDROCHLORIDE
     Dosage: 16 MG, UNK
     Dates: start: 20140825, end: 20140825
  18. DECADRON [Concomitant]
     Active Substance: DEXAMETHASONE
     Dosage: 20 MG, UNK
     Dates: start: 20140804, end: 20140804
  19. CAMPTOSAR [Suspect]
     Active Substance: IRINOTECAN HYDROCHLORIDE
     Indication: COLON CANCER STAGE IV
     Dosage: 600 MG, Q 3 WEEKS
     Route: 042
     Dates: start: 20140804, end: 20140804
  20. ZOFRAN [Concomitant]
     Active Substance: ONDANSETRON HYDROCHLORIDE
     Indication: ANTIEMETIC SUPPORTIVE CARE
     Dosage: 16 MG, UNK
     Dates: start: 20140728, end: 20140728
  21. ZOFRAN [Concomitant]
     Active Substance: ONDANSETRON HYDROCHLORIDE
     Dosage: 16 MG, UNK
     Dates: start: 20140915, end: 20140915
  22. DECADRON [Concomitant]
     Active Substance: DEXAMETHASONE
     Indication: ANTIEMETIC SUPPORTIVE CARE
     Dosage: 20 MG, UNK
     Dates: start: 20140728, end: 20140728

REACTIONS (4)
  - Nausea [Unknown]
  - Death [Fatal]
  - Diarrhoea [Unknown]
  - Abdominal pain [Unknown]

NARRATIVE: CASE EVENT DATE: 2014
